FAERS Safety Report 12204787 (Version 1)
Quarter: 2016Q1

REPORT INFORMATION
  Report Type: Spontaneous
  Country: US (occurrence: None)
  Receive Date: 20160322
  Receipt Date: 20160322
  Transmission Date: 20160526
  Serious: Yes (Other)
  Sender: FDA-Public Use
  Company Number: None

PATIENT
  Age: 28 Year
  Sex: Female

DRUGS (1)
  1. IRON DEXTRAN [Suspect]
     Active Substance: IRON DEXTRAN
     Indication: IRON DEFICIENCY
     Dosage: 25MG X2 IV
     Route: 042

REACTIONS (3)
  - Nausea [None]
  - Urticaria [None]
  - Vomiting [None]

NARRATIVE: CASE EVENT DATE: 20150812
